APPROVED DRUG PRODUCT: SULFAMETHOXAZOLE AND TRIMETHOPRIM
Active Ingredient: SULFAMETHOXAZOLE; TRIMETHOPRIM
Strength: 200MG/5ML;40MG/5ML
Dosage Form/Route: SUSPENSION;ORAL
Application: A212699 | Product #001
Applicant: LUPIN LTD
Approved: Jan 5, 2021 | RLD: No | RS: No | Type: DISCN